FAERS Safety Report 8895588 (Version 1)
Quarter: 2012Q4

REPORT INFORMATION
  Report Type: 
  Country: US (occurrence: US)
  Receive Date: 20121108
  Receipt Date: 20121108
  Transmission Date: 20130627
  Serious: No
  Sender: FDA-Public Use
  Company Number: US-VERTEX PHARMACEUTICAL INC.-2012-024177

PATIENT
  Age: 52 Year
  Sex: Female
  Weight: 67 kg

DRUGS (10)
  1. VX-950 [Suspect]
     Indication: HEPATITIS C
     Dosage: 750 mg, tid
     Route: 048
     Dates: start: 20121101
  2. PEGASYS [Suspect]
     Indication: HEPATITIS C
     Dosage: UNK
     Dates: start: 20121101
  3. RIBAVIRIN [Suspect]
     Indication: HEPATITIS C
     Dosage: UNK
     Dates: start: 20121101
  4. VALTREX [Concomitant]
     Dosage: UNK, prn
  5. ESTRADIOL [Concomitant]
     Dosage: 0.05 mg, q72h
  6. PSEUDOEPHEDRINE [Concomitant]
     Dosage: 60 mg, prn
  7. BYSTOLIC [Concomitant]
     Dosage: 10 mg, qd
  8. ADVIL                              /00044201/ [Concomitant]
     Dosage: 200 mg, UNK
  9. WELLBUTRIN XL [Concomitant]
     Dosage: 300 mg, qd
  10. FIORINAL /00090401/ [Concomitant]
     Dosage: 50-325-40 mg

REACTIONS (3)
  - Oral pain [Unknown]
  - Paraesthesia oral [Unknown]
  - Dry mouth [Unknown]
